FAERS Safety Report 20062643 (Version 2)
Quarter: 2021Q4

REPORT INFORMATION
  Report Type: Spontaneous
  Country: CZ (occurrence: CZ)
  Receive Date: 20211112
  Receipt Date: 20211118
  Transmission Date: 20220304
  Serious: Yes (Other)
  Sender: FDA-Public Use
  Company Number: CZ-AMGEN-CZESP2021167159

PATIENT
  Sex: Male
  Weight: 80 kg

DRUGS (25)
  1. LEUCOVORIN CALCIUM [Suspect]
     Active Substance: LEUCOVORIN CALCIUM
     Indication: Colorectal cancer metastatic
     Dosage: 0.55 UNK, 0.55 MMOL/L
     Route: 065
     Dates: start: 20180813
  2. LEUCOVORIN CALCIUM [Suspect]
     Active Substance: LEUCOVORIN CALCIUM
     Indication: Rectosigmoid cancer
     Dosage: 0.66 UNK / 0.66 MMOL/L
     Route: 065
     Dates: start: 20180716
  3. LEUCOVORIN CALCIUM [Suspect]
     Active Substance: LEUCOVORIN CALCIUM
     Dosage: UNK
     Route: 065
     Dates: start: 20180813
  4. OXALIPLATIN [Suspect]
     Active Substance: OXALIPLATIN
     Dosage: 0.62 UNK / 0.62 MMOL/L
     Route: 065
     Dates: start: 20180430
  5. OXALIPLATIN [Suspect]
     Active Substance: OXALIPLATIN
     Indication: Rectosigmoid cancer
     Dosage: UNK
     Route: 065
     Dates: start: 20170904
  6. OXALIPLATIN [Suspect]
     Active Substance: OXALIPLATIN
     Dosage: UNK, 13TH SERIES OF MFOLFOX6 75% + VECTIBIX 75%
     Route: 065
     Dates: start: 20180528
  7. OXALIPLATIN [Suspect]
     Active Substance: OXALIPLATIN
     Indication: Colorectal cancer metastatic
     Dosage: UNK
     Route: 065
     Dates: start: 20180122
  8. FLUOROURACIL [Suspect]
     Active Substance: FLUOROURACIL
     Dosage: 0.62 UNK / 0.62 MMOL/L
     Route: 065
     Dates: start: 20180430
  9. FLUOROURACIL [Suspect]
     Active Substance: FLUOROURACIL
     Indication: Rectosigmoid cancer
     Dosage: UNK
     Route: 065
     Dates: start: 20170904
  10. FLUOROURACIL [Suspect]
     Active Substance: FLUOROURACIL
     Dosage: UNK
     Route: 065
     Dates: start: 20180813
  11. FLUOROURACIL [Suspect]
     Active Substance: FLUOROURACIL
     Dosage: UNK / 0.66 MMOL/L
     Route: 065
     Dates: start: 20180716
  12. FLUOROURACIL [Suspect]
     Active Substance: FLUOROURACIL
     Indication: Colorectal cancer metastatic
     Dosage: UNK
     Route: 065
     Dates: start: 20180122
  13. FLUOROURACIL [Suspect]
     Active Substance: FLUOROURACIL
     Dosage: UNK, 13TH SERIES OF MFOLFOX6 75% + VECTIBIX 75%13TH SERIES OF MFOLFOX6 75% + VECTIBIX 75%
     Route: 065
     Dates: start: 20180528
  14. FLUOROURACIL [Suspect]
     Active Substance: FLUOROURACIL
     Dosage: 0.55 UNK/ 0.55 MMOL/LL
     Route: 065
     Dates: start: 20180813
  15. VECTIBIX [Suspect]
     Active Substance: PANITUMUMAB
     Dosage: 0.55 UNK / MMOL/L
     Route: 065
     Dates: start: 20180713
  16. VECTIBIX [Suspect]
     Active Substance: PANITUMUMAB
     Indication: Colorectal cancer metastatic
     Dosage: 0.62 UNK / 0.62 MMOL/L
     Dates: start: 20180430
  17. VECTIBIX [Suspect]
     Active Substance: PANITUMUMAB
     Indication: Rectosigmoid cancer
     Dosage: UNK
     Route: 065
     Dates: start: 20170918
  18. VECTIBIX [Suspect]
     Active Substance: PANITUMUMAB
     Dosage: UNK, VECTIBIX 75% MONOTHERAPY
     Route: 065
     Dates: start: 20190416
  19. VECTIBIX [Suspect]
     Active Substance: PANITUMUMAB
     Dosage: UNK
     Route: 065
     Dates: start: 20180813
  20. VECTIBIX [Suspect]
     Active Substance: PANITUMUMAB
     Dosage: UNK / 0.66 MMOL/L
     Route: 065
     Dates: start: 20180716
  21. VECTIBIX [Suspect]
     Active Substance: PANITUMUMAB
     Dosage: UNK, 13TH SERIES OF MFOLFOX6 75% + VECTIBIX 75%
     Route: 065
     Dates: start: 20180528
  22. LEUCOVORIN [Suspect]
     Active Substance: LEUCOVORIN
     Dosage: UNK
     Route: 065
     Dates: start: 20180528
  23. LEUCOVORIN [Suspect]
     Active Substance: LEUCOVORIN
     Indication: Colorectal cancer metastatic
     Dosage: UNK
     Route: 065
     Dates: start: 20180122
  24. LEUCOVORIN [Suspect]
     Active Substance: LEUCOVORIN
     Indication: Rectosigmoid cancer
     Dosage: UNK
     Route: 065
     Dates: start: 20170904
  25. LEUCOVORIN [Suspect]
     Active Substance: LEUCOVORIN
     Dosage: 0.62 UNK / 0.62 MMOL/L
     Route: 065
     Dates: start: 20180430

REACTIONS (33)
  - Aphthous ulcer [Unknown]
  - Mucocutaneous disorder [Unknown]
  - Pruritus [Unknown]
  - Paronychia [Unknown]
  - Dry mouth [Unknown]
  - Peripheral swelling [Unknown]
  - Oral pain [Unknown]
  - Lung disorder [Unknown]
  - Skin exfoliation [Unknown]
  - Pyrexia [Unknown]
  - Dermatitis acneiform [Unknown]
  - Rheumatic disorder [Unknown]
  - Skin fissures [Unknown]
  - Erythema [Unknown]
  - Xerosis [Unknown]
  - Viral infection [Unknown]
  - Lymphadenopathy mediastinal [Unknown]
  - Proteinuria [Unknown]
  - Oral mucosa erosion [Unknown]
  - Neurotoxicity [Unknown]
  - Pain in extremity [Unknown]
  - Dry skin [Unknown]
  - Anaemia [Unknown]
  - Rash pustular [Unknown]
  - Rash papular [Unknown]
  - Dyshidrotic eczema [Unknown]
  - Rash [Unknown]
  - Lip dry [Unknown]
  - Hilar lymphadenopathy [Unknown]
  - Haemorrhage [Unknown]
  - Diarrhoea [Unknown]
  - Cheilitis [Unknown]
  - Neoplasm progression [Unknown]

NARRATIVE: CASE EVENT DATE: 20171002
